FAERS Safety Report 6999491-1 (Version None)
Quarter: 2010Q3

REPORT INFORMATION
  Report Type: 
  Country: None (occurrence: None)
  Receive Date: 20100920
  Receipt Date: 20070523
  Transmission Date: 20110219
  Serious: Yes (Other)
  Sender: FDA-Public Use
  Company Number: US-ASTRAZENECA-2009SE12080

PATIENT
  Age: 13498 Day
  Sex: Male
  Weight: 100.7 kg

DRUGS (20)
  1. SEROQUEL [Suspect]
     Route: 048
     Dates: start: 20050104
  2. TESTOSTERONE [Concomitant]
     Dates: start: 20050104
  3. WELLBUTRIN XL [Concomitant]
     Dates: start: 20050104
  4. NORVASC [Concomitant]
     Dates: start: 20050104
  5. PROPRANOLOL [Concomitant]
     Dates: start: 20050104
  6. AVANDAMET [Concomitant]
     Dosage: 2/500
     Dates: start: 20050104
  7. PRILOSEC [Concomitant]
     Dates: start: 20060112
  8. INSULIN [Concomitant]
     Dosage: 10 UNITS
     Route: 058
     Dates: start: 20050104
  9. HYDROCHLOROTHIAZIDE [Concomitant]
     Route: 048
     Dates: start: 20050104
  10. ENALAPRIL [Concomitant]
     Dosage: 20-40 MG
     Dates: start: 20050106
  11. METFORMIN [Concomitant]
     Dates: end: 20050106
  12. AVANDIA [Concomitant]
     Route: 048
     Dates: start: 20050106
  13. GLIPIZIDE [Concomitant]
     Dosage: 10-40 MG
     Route: 048
     Dates: start: 20050106
  14. VYTORIN [Concomitant]
     Dosage: 10/40 MG DAILY
     Route: 048
     Dates: start: 20050111
  15. GEMFIBROZIL [Concomitant]
     Dates: start: 20060112
  16. EFFEXOR [Concomitant]
     Dates: start: 20060112
  17. LIPITOR [Concomitant]
     Dates: start: 20060112
  18. ACIPHEX [Concomitant]
     Dates: start: 20060112
  19. IBUPROFEN [Concomitant]
     Dates: start: 20060112
  20. LASIX [Concomitant]
     Route: 048
     Dates: start: 20050106

REACTIONS (12)
  - BACK PAIN [None]
  - DYSLIPIDAEMIA [None]
  - GASTRITIS [None]
  - GASTRODUODENITIS [None]
  - GASTROOESOPHAGEAL REFLUX DISEASE [None]
  - HYPERCALCAEMIA [None]
  - HYPERLIPIDAEMIA [None]
  - HYPOAESTHESIA [None]
  - MYALGIA [None]
  - PARAESTHESIA [None]
  - TYPE 1 DIABETES MELLITUS [None]
  - UPPER RESPIRATORY TRACT INFECTION [None]
